FAERS Safety Report 13967093 (Version 1)
Quarter: 2017Q3

REPORT INFORMATION
  Report Type: Report from Study
  Country: TR (occurrence: TR)
  Receive Date: 20170914
  Receipt Date: 20170914
  Transmission Date: 20171128
  Serious: Yes (Death, Other)
  Sender: FDA-Public Use
  Company Number: TR-ASTRAZENECA-2017SE93145

PATIENT
  Age: 19534 Day
  Sex: Female
  Weight: 75 kg

DRUGS (1)
  1. TAGRISSO [Suspect]
     Active Substance: OSIMERTINIB
     Indication: LUNG NEOPLASM MALIGNANT
     Route: 048
     Dates: start: 20160518, end: 20170624

REACTIONS (3)
  - Malignant neoplasm progression [Fatal]
  - Haemoptysis [Fatal]
  - Cardiac arrest [Unknown]

NARRATIVE: CASE EVENT DATE: 20170625
